FAERS Safety Report 17872732 (Version 2)
Quarter: 2020Q2

REPORT INFORMATION
  Report Type: Report from Study
  Country: US (occurrence: US)
  Receive Date: 20200608
  Receipt Date: 20200622
  Transmission Date: 20200714
  Serious: No
  Sender: FDA-Public Use
  Company Number: US-ACTELION-A-US2019-194019

PATIENT
  Sex: Female
  Weight: 60.32 kg

DRUGS (28)
  1. TRACLEER [Suspect]
     Active Substance: BOSENTAN
     Dosage: 125 MG, BID
     Route: 048
     Dates: start: 20191205
  2. AZELASTINE. [Concomitant]
     Active Substance: AZELASTINE HYDROCHLORIDE
     Dosage: 2 SPRAYS EACH NOSTRIL BID
     Route: 045
  3. LOSARTAN POTASSIUM. [Concomitant]
     Active Substance: LOSARTAN POTASSIUM
     Dosage: 50 MG, QD
     Route: 048
  4. LYRICA [Concomitant]
     Active Substance: PREGABALIN
     Dosage: 50 MG, BID
     Route: 048
  5. OMEPRAZOLE. [Concomitant]
     Active Substance: OMEPRAZOLE
     Dosage: 80 MG, QD
     Route: 048
  6. TRACLEER [Suspect]
     Active Substance: BOSENTAN
     Dosage: 125 MG, BID
     Route: 048
     Dates: start: 2018, end: 20190823
  7. ELIQUIS [Concomitant]
     Active Substance: APIXABAN
     Dosage: 5 MG, BID
     Route: 048
  8. EZETIMIBE. [Concomitant]
     Active Substance: EZETIMIBE
     Dosage: 10 MG, QD
     Route: 048
  9. SILDENAFIL CITRATE. [Concomitant]
     Active Substance: SILDENAFIL CITRATE
     Dosage: 20 MG, TID
     Route: 048
  10. TRACLEER [Suspect]
     Active Substance: BOSENTAN
     Indication: PULMONARY HYPERTENSION
     Dosage: 62.5 MG
     Route: 048
     Dates: start: 201806
  11. BETHANECHOL [Concomitant]
     Active Substance: BETHANECHOL
     Dosage: 25 MG, BID
  12. CETIRIZINE [Concomitant]
     Active Substance: CETIRIZINE HYDROCHLORIDE
     Dosage: 5 MG, QD
  13. CHOLECALCIFEROL [Concomitant]
     Active Substance: CHOLECALCIFEROL
     Dosage: 2000 UNITS Q14D
     Route: 048
  14. ERGOCALCIFEROL. [Concomitant]
     Active Substance: ERGOCALCIFEROL
     Dosage: 50,000 U ONCE A WEEK
     Route: 048
  15. GABAPENTIN. [Concomitant]
     Active Substance: GABAPENTIN
     Dosage: 100 MG, QD
     Route: 048
  16. PREGABALIN. [Concomitant]
     Active Substance: PREGABALIN
     Dosage: 100 MG, BID
     Route: 048
  17. CALCIUM CARBONATE AND VITAMIN D [Concomitant]
     Active Substance: CALCIUM CARBONATE\VITAMIN D
     Dosage: 600-200 MG BID
     Route: 048
  18. FLUTICASONE PROPIONATE. [Concomitant]
     Active Substance: FLUTICASONE PROPIONATE
     Dosage: 2 SPRAYS QD
     Route: 045
  19. HEMAX [Concomitant]
     Route: 048
  20. OXYGEN. [Concomitant]
     Active Substance: OXYGEN
     Dosage: 3 L
  21. TRACLEER [Suspect]
     Active Substance: BOSENTAN
     Dosage: UNK
     Route: 048
     Dates: end: 20190709
  22. DILTIAZEM HCL [Concomitant]
     Active Substance: DILTIAZEM HYDROCHLORIDE
     Dosage: 300 MG, QD
     Route: 048
  23. OMEGA 3 [Concomitant]
     Active Substance: OMEGA-3 FATTY ACIDS
     Dosage: 1000 MG, BID
     Route: 048
  24. SUCRALFATE. [Concomitant]
     Active Substance: SUCRALFATE
     Dosage: 1 G, PRN
     Route: 048
  25. ALPHA-TOCOPHEROL, D- [Concomitant]
     Dosage: 400 UNITS QD
     Route: 048
  26. MULTIVITAMIN [Concomitant]
     Active Substance: VITAMINS
     Dosage: UNK, QD
  27. MAGNESIUM CALCIUM [Concomitant]
     Active Substance: CALCIUM CARBONATE\MAGNESIUM CARBONATE
     Dosage: ONCE
     Route: 048
  28. MONTELUKAST [Concomitant]
     Active Substance: MONTELUKAST SODIUM
     Dosage: 10 MG, QD
     Route: 048

REACTIONS (32)
  - Wheezing [Unknown]
  - Haemorrhage [Unknown]
  - Diastolic dysfunction [Unknown]
  - CREST syndrome [Unknown]
  - Red blood cell count decreased [Unknown]
  - Transferrin saturation decreased [Unknown]
  - Gait inability [Unknown]
  - Fatigue [Unknown]
  - Asthenia [Unknown]
  - Chronic respiratory failure [Unknown]
  - Atrial fibrillation [Unknown]
  - Peripheral swelling [Unknown]
  - Arthralgia [Unknown]
  - Spinal disorder [Unknown]
  - Mitral valve incompetence [Unknown]
  - Coagulopathy [Unknown]
  - Haematocrit decreased [Unknown]
  - Back pain [Unknown]
  - Extrasystoles [Unknown]
  - Cardiac murmur [Unknown]
  - Sclerodactylia [Unknown]
  - Haemoglobin decreased [Recovering/Resolving]
  - Limb injury [Unknown]
  - Anaemia [Not Recovered/Not Resolved]
  - Neuropathy peripheral [Unknown]
  - Dyspnoea [Unknown]
  - Chest discomfort [Unknown]
  - Hypoaesthesia [Unknown]
  - Aortic stenosis [Unknown]
  - Inability to afford medication [Unknown]
  - Increased tendency to bruise [Unknown]
  - Scleroderma [Unknown]

NARRATIVE: CASE EVENT DATE: 2019
